FAERS Safety Report 4795115-2 (Version None)
Quarter: 2005Q4

REPORT INFORMATION
  Report Type: 
  Country: None (occurrence: None)
  Receive Date: 20051012
  Receipt Date: 20051003
  Transmission Date: 20060501
  Serious: Yes (Hospitalization)
  Sender: FDA-Public Use
  Company Number: PHRM2005FR02624

PATIENT
  Age: 71 Year
  Sex: Male
  Weight: 68 kg

DRUGS (2)
  1. ZOMETA [Concomitant]
     Indication: GAMMOPATHY
     Dosage: 4 MG, QMO
     Route: 042
     Dates: end: 20050701
  2. AREDIA [Suspect]
     Indication: GAMMOPATHY
     Dosage: 1 DF, QMO
     Route: 042
     Dates: start: 20030701, end: 20040701

REACTIONS (2)
  - OSTEONECROSIS [None]
  - TOOTH EXTRACTION [None]
